FAERS Safety Report 8802729 (Version 1)
Quarter: 2012Q4

REPORT INFORMATION
  Report Type: 
  Country: US (occurrence: US)
  Receive Date: 20120921
  Receipt Date: 20120921
  Transmission Date: 20130627
  Serious: No
  Sender: FDA-Public Use
  Company Number: US-009507513-1208USA007621

PATIENT
  Age: 52 Year
  Sex: Female
  Weight: 97.51 kg

DRUGS (9)
  1. VICTRELIS [Suspect]
     Dosage: UNK
     Route: 048
  2. REBETOL [Suspect]
     Dosage: UNK
     Route: 048
  3. PEGASYS [Concomitant]
     Dosage: Pegasys Proclick Monthly 180 mcg/0.5 ml
     Route: 058
  4. VITAMINS (UNSPECIFIED) [Concomitant]
     Route: 048
  5. CELEXA [Concomitant]
     Route: 048
  6. LYSINE [Concomitant]
     Route: 048
  7. PROBIOTICA [Concomitant]
     Route: 048
  8. MILK THISTLE [Concomitant]
     Route: 048
  9. ASCORBIC ACID [Concomitant]
     Route: 048

REACTIONS (1)
  - Red blood cell count decreased [Unknown]
